FAERS Safety Report 19779610 (Version 1)
Quarter: 2021Q3

REPORT INFORMATION
  Report Type: Spontaneous
  Country: US (occurrence: US)
  Receive Date: 20210902
  Receipt Date: 20210902
  Transmission Date: 20211014
  Serious: Yes (Hospitalization, Other)
  Sender: FDA-Public Use
  Company Number: US-PFIZER INC-202101090191

PATIENT
  Age: 35 Year
  Weight: 104.33 kg

DRUGS (1)
  1. CHANTIX [Suspect]
     Active Substance: VARENICLINE TARTRATE
     Dosage: 4 MG
     Dates: start: 2021

REACTIONS (3)
  - Recalled product administered [Unknown]
  - Off label use [Unknown]
  - Seizure [Unknown]

NARRATIVE: CASE EVENT DATE: 2021
